FAERS Safety Report 5494551-9 (Version None)
Quarter: 2007Q4

REPORT INFORMATION
  Report Type: 
  Country: None (occurrence: None)
  Receive Date: 20071022
  Receipt Date: 20071005
  Transmission Date: 20080405
  Serious: Yes (Hospitalization)
  Sender: FDA-Public Use
  Company Number: 2007BI010093

PATIENT
  Sex: Female

DRUGS (2)
  1. NATALIZUMAB (NATALIZUMAB) [Suspect]
     Indication: RELAPSING-REMITTING MULTIPLE SCLEROSIS
     Dosage: 300 MG; QM; IV
     Route: 042
     Dates: start: 20061108, end: 20070425
  2. MITOXANTRONE [Concomitant]

REACTIONS (10)
  - DIZZINESS [None]
  - EAR PAIN [None]
  - ESCHERICHIA URINARY TRACT INFECTION [None]
  - HEADACHE [None]
  - HERPES ZOSTER DISSEMINATED [None]
  - INCORRECT DOSE ADMINISTERED [None]
  - NAUSEA [None]
  - OPPORTUNISTIC INFECTION [None]
  - PAIN IN EXTREMITY [None]
  - PHARYNGOLARYNGEAL PAIN [None]
